FAERS Safety Report 4871564-9 (Version None)
Quarter: 2005Q4

REPORT INFORMATION
  Report Type: 
  Country: None (occurrence: None)
  Receive Date: 20051230
  Receipt Date: 20051215
  Transmission Date: 20060501
  Serious: Yes (Hospitalization)
  Sender: FDA-Public Use
  Company Number: 2005RR-01345

PATIENT
  Age: 44 Year
  Sex: Female

DRUGS (5)
  1. VALPROIC ACID [Suspect]
  2. HYTRIN [Suspect]
     Dosage: ORAL
     Route: 048
     Dates: start: 20050818
  3. CLOZAPINE [Suspect]
  4. IBUPROFEN [Suspect]
  5. BENZATROPINE (BENZATROPINE) [Suspect]

REACTIONS (3)
  - DIARRHOEA [None]
  - MYOCLONUS [None]
  - PNEUMONIA [None]
